FAERS Safety Report 5236729-5 (Version None)
Quarter: 2007Q1

REPORT INFORMATION
  Report Type: 
  Country: None (occurrence: None)
  Receive Date: 20070213
  Receipt Date: 20070202
  Transmission Date: 20070707
  Serious: Yes (Other)
  Sender: FDA-Public Use
  Company Number: ES-JNJFOC-20060702532

PATIENT
  Age: 53 Year
  Sex: Female

DRUGS (4)
  1. REMICADE [Suspect]
     Route: 042
  2. REMICADE [Suspect]
     Indication: RHEUMATOID ARTHRITIS
     Dosage: FIRST INFUSION
     Route: 042
  3. METHOTREXATE [Concomitant]
     Route: 065
  4. KINERET [Concomitant]
     Route: 065

REACTIONS (1)
  - PNEUMONIA LEGIONELLA [None]
